FAERS Safety Report 6983517-5 (Version None)
Quarter: 2010Q3

REPORT INFORMATION
  Report Type: 
  Country: None (occurrence: None)
  Receive Date: 20100914
  Receipt Date: 20100914
  Transmission Date: 20110219
  Serious: No
  Sender: FDA-Public Use
  Company Number: None

PATIENT
  Age: 52 Year
  Sex: Female

DRUGS (2)
  1. SINGULAIR [Suspect]
     Dates: start: 20100101, end: 20100101
  2. SINGULAIR [Suspect]
     Dates: start: 20090101

REACTIONS (3)
  - COUGH [None]
  - DEPRESSION [None]
  - LETHARGY [None]
